FAERS Safety Report 24977488 (Version 2)
Quarter: 2025Q1

REPORT INFORMATION
  Report Type: Spontaneous
  Country: US (occurrence: US)
  Receive Date: 20250217
  Receipt Date: 20250312
  Transmission Date: 20250409
  Serious: Yes (Hospitalization)
  Sender: PAREXEL
  Company Number: US-BELCHER PHARMACEUTICALS, LLC-2025US000669

PATIENT

DRUGS (1)
  1. SEMAGLUTIDE [Suspect]
     Active Substance: SEMAGLUTIDE
     Indication: Product used for unknown indication
     Route: 065

REACTIONS (3)
  - Metabolic acidosis [Recovered/Resolved]
  - Lipase increased [Recovered/Resolved]
  - Vomiting [Recovered/Resolved]
